FAERS Safety Report 5994926-5 (Version None)
Quarter: 2008Q4

REPORT INFORMATION
  Report Type: 
  Country: None (occurrence: None)
  Receive Date: 20081212
  Receipt Date: 20080917
  Transmission Date: 20090506
  Serious: No
  Sender: FDA-Public Use
  Company Number: US-ABBOTT-08P-163-0477035-00

PATIENT
  Sex: Female
  Weight: 50.848 kg

DRUGS (13)
  1. HUMIRA [Suspect]
     Indication: RHEUMATOID ARTHRITIS
     Route: 050
     Dates: start: 20050101, end: 20080723
  2. HUMIRA [Suspect]
     Indication: RHEUMATOID ARTHRITIS
     Route: 050
     Dates: start: 20080723
  3. CLONAZEPAM [Concomitant]
     Indication: ANXIETY
     Route: 048
     Dates: start: 19980101
  4. PROGESTERONE [Concomitant]
     Indication: HORMONE REPLACEMENT THERAPY
     Route: 048
  5. PREDNISONE TAB [Concomitant]
     Indication: RHEUMATOID ARTHRITIS
     Route: 048
     Dates: start: 19830101
  6. ESTRODIAL [Concomitant]
     Indication: HORMONE REPLACEMENT THERAPY
     Route: 048
  7. CEVIMELINE HYDROCHLORIDE [Concomitant]
     Indication: RHEUMATOID ARTHRITIS
     Route: 048
     Dates: start: 20040101
  8. CEVIMELINE HYDROCHLORIDE [Concomitant]
     Indication: SJOGREN'S SYNDROME
  9. TRAZODONE HCL [Concomitant]
     Indication: DEPRESSION
     Route: 048
  10. TRAMADOL HCL [Concomitant]
     Indication: RHEUMATOID ARTHRITIS
     Route: 048
     Dates: start: 20030101
  11. GABAPENTIN [Concomitant]
     Indication: DEPRESSION
     Route: 048
     Dates: start: 20030101
  12. HYDROCODONE BITARTRATE [Concomitant]
     Indication: RHEUMATOID ARTHRITIS
     Dosage: 5/500 MG AS NEEDED
     Route: 048
     Dates: start: 20030101
  13. OLANZAPINE [Concomitant]
     Indication: DEPRESSION
     Route: 048
     Dates: start: 20080301

REACTIONS (2)
  - ACCIDENTAL EXPOSURE [None]
  - INJECTION SITE IRRITATION [None]
